FAERS Safety Report 10709667 (Version 1)
Quarter: 2015Q1

REPORT INFORMATION
  Report Type: Report from Study
  Country: US (occurrence: US)
  Receive Date: 20150114
  Receipt Date: 20150114
  Transmission Date: 20150721
  Serious: Yes (Hospitalization, Other)
  Sender: FDA-Public Use
  Company Number: US-JNJFOC-20150101401

PATIENT
  Age: 79 Year
  Sex: Male
  Weight: 72.58 kg

DRUGS (10)
  1. LASIX [Concomitant]
     Active Substance: FUROSEMIDE
     Route: 065
  2. ISOSORBIDE [Concomitant]
     Active Substance: ISOSORBIDE
     Route: 065
  3. XARELTO [Suspect]
     Active Substance: RIVAROXABAN
     Indication: CEREBROVASCULAR ACCIDENT PROPHYLAXIS
     Route: 048
     Dates: start: 201402
  4. XARELTO [Suspect]
     Active Substance: RIVAROXABAN
     Indication: ATRIAL FIBRILLATION
     Route: 048
     Dates: start: 201402
  5. CARVEDILOL. [Concomitant]
     Active Substance: CARVEDILOL
     Route: 065
  6. ZETIA [Concomitant]
     Active Substance: EZETIMIBE
     Indication: BLOOD CHOLESTEROL
     Route: 065
  7. ASPIRIN. [Suspect]
     Active Substance: ASPIRIN
     Indication: PRODUCT USED FOR UNKNOWN INDICATION
     Route: 065
  8. FINASTERIDE. [Concomitant]
     Active Substance: FINASTERIDE
     Indication: PROSTATIC DISORDER
     Route: 065
  9. ENALAPRIL [Concomitant]
     Active Substance: ENALAPRIL
     Route: 065
  10. FELODIPINE. [Concomitant]
     Active Substance: FELODIPINE
     Route: 065

REACTIONS (6)
  - Internal haemorrhage [Unknown]
  - Increased tendency to bruise [Not Recovered/Not Resolved]
  - Haemorrhage [Unknown]
  - Ventricular tachycardia [Unknown]
  - Faeces discoloured [Not Recovered/Not Resolved]
  - Hepatitis [Unknown]

NARRATIVE: CASE EVENT DATE: 2014
